FAERS Safety Report 10031323 (Version 1)
Quarter: 2014Q1

REPORT INFORMATION
  Report Type: Spontaneous
  Country: US (occurrence: US)
  Receive Date: 20140324
  Receipt Date: 20140324
  Transmission Date: 20141002
  Serious: Yes (Other)
  Sender: FDA-Public Use
  Company Number: US-ROCHE-1370017

PATIENT
  Age: 58 Year
  Sex: Female
  Weight: 75.36 kg

DRUGS (1)
  1. XOLAIR [Suspect]
     Indication: PRODUCT USED FOR UNKNOWN INDICATION
     Route: 058
     Dates: start: 20140306

REACTIONS (2)
  - Pruritus [Recovered/Resolved]
  - Paraesthesia oral [Recovered/Resolved]
